FAERS Safety Report 9720866 (Version 1)
Quarter: 2013Q4

REPORT INFORMATION
  Report Type: Spontaneous
  Country: CH (occurrence: CH)
  Receive Date: 20131129
  Receipt Date: 20131129
  Transmission Date: 20140711
  Serious: Yes (Hospitalization)
  Sender: FDA-Public Use
  Company Number: CH-009507513-1311CHE012348

PATIENT
  Age: 84 Year
  Sex: Female
  Weight: 64 kg

DRUGS (7)
  1. JANUMET [Suspect]
     Indication: DIABETES MELLITUS
     Dosage: 1700/100 MG, BID
     Route: 048
     Dates: start: 20131010
  2. DAONIL [Suspect]
     Indication: DIABETES MELLITUS
     Dosage: 5 MG, BID
     Route: 048
     Dates: start: 20131010, end: 20131014
  3. COTENOLOL NEO [Suspect]
     Indication: HYPERTENSION
     Dosage: 25/100 MG, BID
     Route: 048
     Dates: end: 20131014
  4. NORMISON [Concomitant]
     Dosage: 20 MG, QD
     Route: 048
  5. ASPIRIN CARDIO [Concomitant]
     Dosage: 100 MG, QD
     Route: 048
  6. SORTIS [Concomitant]
     Dosage: 20 MG, QD
     Route: 048
  7. CORVATON [Concomitant]
     Dosage: 2 MG, 1/2 TABLET, QD
     Route: 048

REACTIONS (3)
  - Hyponatraemia [Recovering/Resolving]
  - Confusional state [Recovered/Resolved]
  - Hepatic enzyme increased [Recovering/Resolving]
